FAERS Safety Report 16122136 (Version 1)
Quarter: 2019Q2

REPORT INFORMATION
  Report Type: Spontaneous
  Country: US (occurrence: US)
  Receive Date: 20190326
  Receipt Date: 20190326
  Transmission Date: 20190711
  Serious: Yes (Life-Threatening, Hospitalization, Disabling, Other)
  Sender: FDA-Public Use
  Company Number: None

PATIENT
  Age: 69 Year
  Sex: Female
  Weight: 69.3 kg

DRUGS (9)
  1. BIPAP [Concomitant]
     Active Substance: DEVICE
  2. PRAVASTATIN. [Concomitant]
     Active Substance: PRAVASTATIN
  3. PROLIA [Suspect]
     Active Substance: DENOSUMAB
     Indication: OSTEOPOROSIS
     Dosage: ?          OTHER FREQUENCY:Q 6 MONTH SQ;?
     Route: 058
  4. LISINOPRIL. [Concomitant]
     Active Substance: LISINOPRIL
  5. ASPIRIN. [Concomitant]
     Active Substance: ASPIRIN
  6. TYLENOL [Concomitant]
     Active Substance: ACETAMINOPHEN
  7. FEMARA [Concomitant]
     Active Substance: LETROZOLE
  8. BENADRYL [Concomitant]
     Active Substance: DIPHENHYDRAMINE HYDROCHLORIDE
  9. EXCEDRIN [Concomitant]
     Active Substance: ACETAMINOPHEN\ASPIRIN\CAFFEINE

REACTIONS (25)
  - Radius fracture [None]
  - Migraine [None]
  - Nausea [None]
  - Loss of consciousness [None]
  - Hypoaesthesia [None]
  - Hypoaesthesia oral [None]
  - Vertigo [None]
  - Unresponsive to stimuli [None]
  - Dyspnoea [None]
  - Dizziness [None]
  - Anxiety [None]
  - Abdominal pain [None]
  - Feeling hot [None]
  - Vomiting [None]
  - Neck pain [None]
  - Diarrhoea [None]
  - Confusional state [None]
  - Loss of personal independence in daily activities [None]
  - Bone pain [None]
  - Fatigue [None]
  - Feeling abnormal [None]
  - Fall [None]
  - Pain in jaw [None]
  - Impaired driving ability [None]
  - Emotional distress [None]

NARRATIVE: CASE EVENT DATE: 20190226
